FAERS Safety Report 12928418 (Version 1)
Quarter: 2016Q4

REPORT INFORMATION
  Report Type: Report from Study
  Country: IE (occurrence: IE)
  Receive Date: 20161110
  Receipt Date: 20161110
  Transmission Date: 20170207
  Serious: Yes (Hospitalization, Other)
  Sender: FDA-Public Use
  Company Number: IE-AMGEN-IRLSL2016155689

PATIENT
  Age: 82 Year
  Sex: Male

DRUGS (4)
  1. ARANESP [Suspect]
     Active Substance: DARBEPOETIN ALFA
     Indication: MYELODYSPLASTIC SYNDROME
     Dosage: 500 MUG, Q3WK
     Route: 058
     Dates: start: 20161005
  2. COVERSYL [Concomitant]
     Active Substance: PERINDOPRIL
     Dosage: 5 MG, QD
  3. COMBODART [Concomitant]
     Active Substance: DUTASTERIDE\TAMSULOSIN
     Dosage: 0.5 MG, QD
  4. SOTOGER [Concomitant]
     Dosage: 80 MG, BID

REACTIONS (2)
  - Haematemesis [Not Recovered/Not Resolved]
  - Off label use [Unknown]

NARRATIVE: CASE EVENT DATE: 20161005
